FAERS Safety Report 23274957 (Version 1)
Quarter: 2023Q4

REPORT INFORMATION
  Report Type: Other
  Country: US (occurrence: None)
  Receive Date: 20231208
  Receipt Date: 20231208
  Transmission Date: 20240110
  Serious: No
  Sender: FDA-Public Use
  Company Number: US-ROCHE-3471886

PATIENT
  Age: 80 Year
  Sex: Male

DRUGS (1)
  1. OCREVUS [Suspect]
     Active Substance: OCRELIZUMAB
     Indication: Primary progressive multiple sclerosis
     Dosage: DATE OF TREATMENT: 10/MAY/2019
     Route: 065

REACTIONS (3)
  - Illness [Unknown]
  - Influenza [Unknown]
  - Upper respiratory tract infection [Unknown]
